FAERS Safety Report 8575649-5 (Version None)
Quarter: 2012Q3

REPORT INFORMATION
  Report Type: 
  Country: None (occurrence: None)
  Receive Date: 20120807
  Receipt Date: 20120802
  Transmission Date: 20120928
  Serious: Yes (Hospitalization, Other)
  Sender: FDA-Public Use
  Company Number: US-PFIZER INC-2012135923

PATIENT
  Age: 64 Year
  Sex: Female
  Weight: 50 kg

DRUGS (6)
  1. XALKORI [Suspect]
     Indication: LUNG NEOPLASM MALIGNANT
     Dosage: 250 MG, 2X/DAY
     Route: 048
     Dates: start: 20120303, end: 20120309
  2. ATENOLOL [Concomitant]
     Dosage: 100 MG, UNK
  3. XALKORI [Suspect]
     Dosage: 400 MG, 1X/DAY
     Route: 048
     Dates: start: 20120310
  4. BENICAR [Concomitant]
     Dosage: 20 MG, UNK
  5. ALPRAZOLAM [Concomitant]
     Dosage: 0.5 MG, UNK
  6. LEVOTHYROXINE [Concomitant]
     Dosage: 0.25 MG, 1X/DAY

REACTIONS (10)
  - OEDEMA [None]
  - BLOOD PRESSURE FLUCTUATION [None]
  - PYREXIA [None]
  - VISION BLURRED [None]
  - HEPATOBILIARY SCAN ABNORMAL [None]
  - FATIGUE [None]
  - OESOPHAGEAL PAIN [None]
  - PANCREATITIS [None]
  - DIARRHOEA [None]
  - MALAISE [None]
